FAERS Safety Report 6906842-2 (Version None)
Quarter: 2010Q3

REPORT INFORMATION
  Report Type: 
  Country: None (occurrence: None)
  Receive Date: 20100804
  Receipt Date: 20100720
  Transmission Date: 20110219
  Serious: Yes (Death, Other)
  Sender: FDA-Public Use
  Company Number: US-CELGENEUS-163-50794-09050699

PATIENT

DRUGS (2)
  1. VIDAZA [Suspect]
     Indication: MYELODYSPLASTIC SYNDROME
     Route: 058
  2. ROMIPLOSTIN [Suspect]
     Indication: THROMBOCYTOPENIA
     Dosage: 500MCG - 750MCG
     Route: 058

REACTIONS (27)
  - ANAEMIA [None]
  - ARTHRALGIA [None]
  - CONSTIPATION [None]
  - CONTUSION [None]
  - DECREASED APPETITE [None]
  - DIARRHOEA [None]
  - DIZZINESS [None]
  - DYSPNOEA [None]
  - ENDOCARDITIS [None]
  - EPISTAXIS [None]
  - ERYTHEMA NODOSUM [None]
  - FATIGUE [None]
  - FEBRILE NEUTROPENIA [None]
  - HAEMORRHAGE [None]
  - HYPERSENSITIVITY [None]
  - HYPOTENSION [None]
  - MYELODYSPLASTIC SYNDROME TRANSFORMATION [None]
  - MYELOFIBROSIS [None]
  - NAUSEA [None]
  - NEUTROPENIA [None]
  - OEDEMA PERIPHERAL [None]
  - PAIN IN EXTREMITY [None]
  - PANCYTOPENIA [None]
  - PNEUMONIA FUNGAL [None]
  - PULMONARY HAEMORRHAGE [None]
  - RASH [None]
  - THROMBOCYTOPENIA [None]
